FAERS Safety Report 5623042-7 (Version None)
Quarter: 2008Q1

REPORT INFORMATION
  Report Type: 
  Country: None (occurrence: None)
  Receive Date: 20080212
  Receipt Date: 20080208
  Transmission Date: 20080703
  Serious: Yes (Other)
  Sender: FDA-Public Use
  Company Number: A0706332A

PATIENT
  Sex: Female

DRUGS (3)
  1. ALLI [Suspect]
     Indication: DRUG USE FOR UNKNOWN INDICATION
     Route: 048
  2. OMEGA 3 [Suspect]
  3. YAZ [Concomitant]

REACTIONS (5)
  - DRUG INEFFECTIVE [None]
  - GASTROINTESTINAL DISORDER [None]
  - HAEMORRHAGE [None]
  - WEIGHT FLUCTUATION [None]
  - WEIGHT INCREASED [None]
